FAERS Safety Report 5742072-8 (Version None)
Quarter: 2008Q2

REPORT INFORMATION
  Report Type: 
  Country: None (occurrence: None)
  Receive Date: 20080519
  Receipt Date: 20080512
  Transmission Date: 20081010
  Serious: Yes (Life-Threatening, Hospitalization)
  Sender: FDA-Public Use
  Company Number: US-MERCK-0804USA06135

PATIENT
  Age: 10 Year
  Sex: Male

DRUGS (4)
  1. SINGULAIR [Suspect]
     Indication: HYPERSENSITIVITY
     Route: 048
     Dates: start: 20070801, end: 20080428
  2. SINGULAIR [Suspect]
     Indication: ASTHMA
     Route: 048
     Dates: start: 20070801, end: 20080428
  3. ZYRTEC [Concomitant]
     Route: 065
     Dates: start: 20070801, end: 20080428
  4. CONCERTA [Concomitant]
     Route: 065

REACTIONS (1)
  - SUICIDE ATTEMPT [None]
